FAERS Safety Report 16532261 (Version 1)
Quarter: 2019Q3

REPORT INFORMATION
  Report Type: Spontaneous
  Country: CN (occurrence: CN)
  Receive Date: 20190704
  Receipt Date: 20190704
  Transmission Date: 20191004
  Serious: Yes (Other)
  Sender: FDA-Public Use
  Company Number: CN-PFIZER INC-2019281126

PATIENT
  Age: 61 Year
  Sex: Female
  Weight: 57 kg

DRUGS (5)
  1. PHARMORUBICIN [Suspect]
     Active Substance: EPIRUBICIN
     Indication: HODGKIN^S DISEASE
     Dosage: 50 MG, 1X/DAY
     Route: 040
     Dates: start: 20190607, end: 20190607
  2. DACARBAZINE. [Suspect]
     Active Substance: DACARBAZINE
     Indication: HODGKIN^S DISEASE
     Dosage: 0.5 G, 1X/DAY
     Route: 041
     Dates: start: 20190607, end: 20190607
  3. KAI SI [ADENOSINE PHOSPHATE] [Concomitant]
     Indication: CARDIAC DYSFUNCTION
     Dosage: 180 MG, 1X/DAY
     Route: 041
     Dates: start: 20190605, end: 20190610
  4. VINCRISTINE SULFATE. [Suspect]
     Active Substance: VINCRISTINE SULFATE
     Indication: HODGKIN^S DISEASE
     Dosage: 2 MG, 1X/DAY
     Route: 040
     Dates: start: 20190607, end: 20190607
  5. BLEOMYCIN HYDROCHLORIDE [Suspect]
     Active Substance: BLEOMYCIN HYDROCHLORIDE
     Indication: HODGKIN^S DISEASE
     Dosage: 2000 IU, 1X/DAY
     Route: 040
     Dates: start: 20190607, end: 20190607

REACTIONS (1)
  - Liver injury [Recovering/Resolving]

NARRATIVE: CASE EVENT DATE: 20190620
